FAERS Safety Report 19274374 (Version 1)
Quarter: 2021Q2

REPORT INFORMATION
  Report Type: Report from Study
  Country: US (occurrence: US)
  Receive Date: 20210519
  Receipt Date: 20210519
  Transmission Date: 20210717
  Serious: No
  Sender: FDA-Public Use
  Company Number: US-GLAXOSMITHKLINE-US2021AMR091275

PATIENT
  Age: 47 Year
  Sex: Female

DRUGS (1)
  1. BELANTAMAB MAFODOTIN. [Suspect]
     Active Substance: BELANTAMAB MAFODOTIN
     Indication: PRODUCT USED FOR UNKNOWN INDICATION
     Dosage: UNK
     Dates: start: 20200911

REACTIONS (12)
  - Keratopathy [Recovering/Resolving]
  - Ocular toxicity [Unknown]
  - Eye disorder [Unknown]
  - Hypoaesthesia eye [Unknown]
  - Central nervous system lesion [Unknown]
  - Night blindness [Recovering/Resolving]
  - Ocular discomfort [Unknown]
  - Visual acuity reduced [Recovering/Resolving]
  - Sensation of foreign body [Recovering/Resolving]
  - Keratitis [Unknown]
  - Dry eye [Recovering/Resolving]
  - Photophobia [Recovering/Resolving]

NARRATIVE: CASE EVENT DATE: 20201001
